FAERS Safety Report 7689569-1 (Version None)
Quarter: 2011Q3

REPORT INFORMATION
  Report Type: 
  Country: None (occurrence: None)
  Receive Date: 20110817
  Receipt Date: 20110802
  Transmission Date: 20111222
  Serious: Yes (Other)
  Sender: FDA-Public Use
  Company Number: US-WATSON-2011-12024

PATIENT
  Sex: Male
  Weight: 77 kg

DRUGS (1)
  1. GELNIQUE [Suspect]
     Indication: POLLAKIURIA
     Dosage: 1 SACHET DAILY
     Route: 061
     Dates: start: 20110707, end: 20110801

REACTIONS (4)
  - INSOMNIA [None]
  - DRUG ADMINISTRATION ERROR [None]
  - RESTLESSNESS [None]
  - POSITRON EMISSION TOMOGRAM ABNORMAL [None]
